FAERS Safety Report 14022169 (Version 1)
Quarter: 2017Q3

REPORT INFORMATION
  Report Type: Spontaneous
  Country: US (occurrence: US)
  Receive Date: 20170928
  Receipt Date: 20170928
  Transmission Date: 20171128
  Serious: Yes (Hospitalization, Other)
  Sender: FDA-Public Use
  Company Number: US-009507513-1709USA012071

PATIENT
  Age: 58 Year
  Sex: Female
  Weight: 48.3 kg

DRUGS (2)
  1. KEYTRUDA [Suspect]
     Active Substance: PEMBROLIZUMAB
     Indication: MALIGNANT NEOPLASM OF AMPULLA OF VATER
     Dosage: 200 MG, Q3W
     Route: 042
     Dates: start: 20170915
  2. HEAT SHOCK PROTEIN 90 INHIBITOR (UNSPECIFIED) [Suspect]
     Active Substance: INVESTIGATIONAL PRODUCT
     Indication: MALIGNANT NEOPLASM OF AMPULLA OF VATER
     Dosage: 90 MG, UNK
     Route: 048
     Dates: start: 20170915

REACTIONS (3)
  - Autoimmune hepatitis [Recovering/Resolving]
  - Transaminases increased [Recovering/Resolving]
  - Product use in unapproved indication [Unknown]

NARRATIVE: CASE EVENT DATE: 201709
